FAERS Safety Report 5910464-X (Version None)
Quarter: 2008Q4

REPORT INFORMATION
  Report Type: 
  Country: None (occurrence: None)
  Receive Date: 20081006
  Receipt Date: 20081006
  Transmission Date: 20090506
  Serious: No
  Sender: FDA-Public Use
  Company Number: None

PATIENT
  Age: 62 Year
  Sex: Female
  Weight: 52.3 kg

DRUGS (2)
  1. SERTRALINE [Suspect]
     Indication: DEPRESSION
     Dosage: 50MG  1  PO
     Route: 048
     Dates: start: 20080711, end: 20081006
  2. SERTRALINE [Suspect]
     Indication: PANIC ATTACK
     Dosage: 50MG  1  PO
     Route: 048
     Dates: start: 20080711, end: 20081006

REACTIONS (11)
  - ABNORMAL BEHAVIOUR [None]
  - AGGRESSION [None]
  - APATHY [None]
  - CONTUSION [None]
  - HAEMORRHAGE [None]
  - HEADACHE [None]
  - LOSS OF LIBIDO [None]
  - PARAESTHESIA [None]
  - PHOTOSENSITIVITY REACTION [None]
  - SUICIDAL IDEATION [None]
  - TEARFULNESS [None]
